FAERS Safety Report 19399275 (Version 1)
Quarter: 2021Q2

REPORT INFORMATION
  Report Type: Spontaneous
  Country: CN (occurrence: CN)
  Receive Date: 20210610
  Receipt Date: 20210610
  Transmission Date: 20210717
  Serious: Yes (Other)
  Sender: FDA-Public Use
  Company Number: CN-ASTRAZENECA-2021A514900

PATIENT
  Age: 23742 Day
  Sex: Female
  Weight: 46 kg

DRUGS (1)
  1. TICAGRELOR. [Suspect]
     Active Substance: TICAGRELOR
     Indication: PLATELET AGGREGATION INHIBITION
     Route: 048
     Dates: start: 20201004, end: 20201008

REACTIONS (2)
  - Haematochezia [Recovering/Resolving]
  - Abdominal pain [Recovering/Resolving]

NARRATIVE: CASE EVENT DATE: 20201005
